FAERS Safety Report 13589901 (Version 1)
Quarter: 2017Q2

REPORT INFORMATION
  Report Type: Spontaneous
  Country: US (occurrence: US)
  Receive Date: 20170528
  Receipt Date: 20170528
  Transmission Date: 20170830
  Serious: Yes (Other)
  Sender: FDA-Public Use
  Company Number: None

PATIENT
  Age: 44 Year
  Sex: Female
  Weight: 57.6 kg

DRUGS (10)
  1. REMICADE [Suspect]
     Active Substance: INFLIXIMAB
     Indication: PSORIATIC ARTHROPATHY
     Dosage: ?          OTHER FREQUENCY:EVERY 2 WEEKS;?
     Route: 042
     Dates: start: 20170517
  2. FISH OIL [Concomitant]
     Active Substance: FISH OIL
  3. MIRALAX [Concomitant]
     Active Substance: POLYETHYLENE GLYCOL 3350
  4. VITAMIN D [Concomitant]
     Active Substance: CHOLECALCIFEROL
  5. REMICADE [Suspect]
     Active Substance: INFLIXIMAB
     Indication: ANKYLOSING SPONDYLITIS
     Dosage: ?          OTHER FREQUENCY:EVERY 2 WEEKS;?
     Route: 042
     Dates: start: 20170517
  6. VITAMIN B [Concomitant]
     Active Substance: VITAMIN B
  7. IRON [Concomitant]
     Active Substance: IRON
  8. METHOTREXATE. [Concomitant]
     Active Substance: METHOTREXATE
  9. PREMARIN [Concomitant]
     Active Substance: ESTROGENS, CONJUGATED
  10. VOLTAREN [Concomitant]
     Active Substance: DICLOFENAC SODIUM

REACTIONS (9)
  - Myalgia [None]
  - Hepatic pain [None]
  - Chest pain [None]
  - Joint swelling [None]
  - Peripheral swelling [None]
  - Swelling [None]
  - Pain [None]
  - Abdominal pain upper [None]
  - Costochondritis [None]

NARRATIVE: CASE EVENT DATE: 20170518
